FAERS Safety Report 19150948 (Version 2)
Quarter: 2021Q2

REPORT INFORMATION
  Report Type: Spontaneous
  Country: US (occurrence: US)
  Receive Date: 20210419
  Receipt Date: 20210518
  Transmission Date: 20210717
  Serious: Yes (Hospitalization)
  Sender: FDA-Public Use
  Company Number: US-ROCHE-2812278

PATIENT
  Sex: Male
  Weight: 97.61 kg

DRUGS (11)
  1. ESBRIET [Suspect]
     Active Substance: PIRFENIDONE
     Dosage: FOR 1 WEEK?534 MG
     Route: 048
     Dates: start: 2021, end: 2021
  2. ASPIRIN. [Concomitant]
     Active Substance: ASPIRIN
  3. ESBRIET [Suspect]
     Active Substance: PIRFENIDONE
     Indication: IDIOPATHIC PULMONARY FIBROSIS
     Dosage: FOR 1 WEEK
     Route: 048
     Dates: start: 2021, end: 2021
  4. IRBESARTAN/HYDROCHLOROTHIAZIDE [Concomitant]
     Active Substance: HYDROCHLOROTHIAZIDE\IRBESARTAN
  5. ESBRIET [Suspect]
     Active Substance: PIRFENIDONE
     Dosage: WITH MEAL
     Route: 048
  6. TAMSULOSIN HCL [Concomitant]
     Active Substance: TAMSULOSIN HYDROCHLORIDE
  7. BREO ELLIPTA [Concomitant]
     Active Substance: FLUTICASONE FUROATE\VILANTEROL TRIFENATATE
  8. FUROSEMIDE. [Concomitant]
     Active Substance: FUROSEMIDE
     Dates: start: 1984
  9. AMLODIPINE [Concomitant]
     Active Substance: AMLODIPINE BESYLATE
  10. ROSUVASTATIN CALCIUM. [Concomitant]
     Active Substance: ROSUVASTATIN CALCIUM
  11. FUROSEMIDE. [Concomitant]
     Active Substance: FUROSEMIDE

REACTIONS (6)
  - Nausea [Not Recovered/Not Resolved]
  - Pneumonia [Recovered/Resolved]
  - Accident [Unknown]
  - Dizziness [Recovered/Resolved]
  - Abdominal discomfort [Not Recovered/Not Resolved]
  - Eructation [Not Recovered/Not Resolved]

NARRATIVE: CASE EVENT DATE: 2021
